FAERS Safety Report 5203462-5 (Version None)
Quarter: 2007Q1

REPORT INFORMATION
  Report Type: 
  Country: None (occurrence: None)
  Receive Date: 20070110
  Receipt Date: 20070102
  Transmission Date: 20070707
  Serious: Yes (Other)
  Sender: FDA-Public Use
  Company Number: IT-BRISTOL-MYERS SQUIBB COMPANY-13628565

PATIENT
  Age: 37 Year
  Sex: Female

DRUGS (1)
  1. FOSIPRES [Suspect]
     Indication: HYPERTENSION
     Route: 048
     Dates: start: 20061101, end: 20061224

REACTIONS (2)
  - LIP OEDEMA [None]
  - PRURITUS [None]
